FAERS Safety Report 22335473 (Version 1)
Quarter: 2023Q2

REPORT INFORMATION
  Report Type: Spontaneous
  Country: US (occurrence: None)
  Receive Date: 20230518
  Receipt Date: 20230518
  Transmission Date: 20230721
  Serious: No
  Sender: FDA-Public Use
  Company Number: 2023A114488

PATIENT
  Sex: Female
  Weight: 56.7 kg

DRUGS (1)
  1. TAGRISSO [Suspect]
     Active Substance: OSIMERTINIB
     Indication: Carcinoembryonic antigen increased
     Dosage: FREQUENCY EVERY OTHER DAY
     Route: 048
     Dates: start: 20220601

REACTIONS (4)
  - Arthralgia [Unknown]
  - Pain [Unknown]
  - Diarrhoea [Unknown]
  - Off label use [Unknown]
